FAERS Safety Report 6916814-X (Version None)
Quarter: 2010Q3

REPORT INFORMATION
  Report Type: 
  Country: None (occurrence: None)
  Receive Date: 20100810
  Receipt Date: 20100120
  Transmission Date: 20110219
  Serious: Yes (Hospitalization)
  Sender: FDA-Public Use
  Company Number: ES-SANOFI-AVENTIS-2010SA000362

PATIENT
  Age: 49 Year
  Sex: Female

DRUGS (8)
  1. AFLIBERCEPT [Suspect]
     Route: 042
     Dates: start: 20091217, end: 20091217
  2. OXALIPLATIN [Suspect]
     Route: 042
     Dates: start: 20091217, end: 20091217
  3. FLUOROURACIL [Suspect]
     Route: 042
     Dates: start: 20091217, end: 20091217
  4. LEUCOVORIN CALCIUM [Suspect]
     Route: 042
     Dates: start: 20091217, end: 20091217
  5. OXYCONTIN [Concomitant]
  6. OXYCODONE HCL [Concomitant]
  7. NAPROSYN [Concomitant]
  8. DUPHALAC /NET/ [Concomitant]

REACTIONS (1)
  - ILEAL PERFORATION [None]
